FAERS Safety Report 17413714 (Version 2)
Quarter: 2020Q1

REPORT INFORMATION
  Report Type: Spontaneous
  Country: FR (occurrence: FR)
  Receive Date: 20200213
  Receipt Date: 20200323
  Transmission Date: 20200409
  Serious: Yes (Other)
  Sender: FDA-Public Use
  Company Number: NVSC2020FR033231

PATIENT
  Age: 52 Year
  Sex: Female

DRUGS (9)
  1. CAPECITABINE. [Suspect]
     Active Substance: CAPECITABINE
     Indication: METASTASES TO BONE
     Dosage: UNK
     Route: 065
  2. LAPATINIB [Suspect]
     Active Substance: LAPATINIB
     Indication: HER-2 POSITIVE BREAST CANCER
  3. LAPATINIB [Suspect]
     Active Substance: LAPATINIB
     Indication: METASTASES TO BONE
     Dosage: UNK
     Route: 065
  4. LAPATINIB [Suspect]
     Active Substance: LAPATINIB
     Indication: METASTASES TO LIVER
  5. CAPECITABINE. [Suspect]
     Active Substance: CAPECITABINE
     Indication: METASTASES TO LIVER
  6. TRASTUZUMAB EMTANSINE [Suspect]
     Active Substance: ADO-TRASTUZUMAB EMTANSINE
     Indication: METASTASES TO BONE
  7. TRASTUZUMAB EMTANSINE [Suspect]
     Active Substance: ADO-TRASTUZUMAB EMTANSINE
     Indication: METASTASES TO LIVER
     Dosage: UNK
     Route: 065
     Dates: start: 201301, end: 201710
  8. CAPECITABINE. [Suspect]
     Active Substance: CAPECITABINE
     Indication: HER-2 POSITIVE BREAST CANCER
  9. TRASTUZUMAB EMTANSINE [Suspect]
     Active Substance: ADO-TRASTUZUMAB EMTANSINE
     Indication: HER-2 POSITIVE BREAST CANCER

REACTIONS (10)
  - Oedema peripheral [Recovered/Resolved]
  - Thrombocytopenia [Unknown]
  - Aspartate aminotransferase increased [Unknown]
  - Metastases to skin [Unknown]
  - Cholestasis [Recovered/Resolved]
  - Blood bilirubin increased [Unknown]
  - Non-cirrhotic portal hypertension [Recovered/Resolved]
  - Venoocclusive liver disease [Recovered/Resolved]
  - Alanine aminotransferase increased [Recovered/Resolved]
  - Ascites [Recovered/Resolved]

NARRATIVE: CASE EVENT DATE: 201307
